FAERS Safety Report 12180255 (Version 1)
Quarter: 2016Q1

REPORT INFORMATION
  Report Type: Spontaneous
  Country: FI (occurrence: FI)
  Receive Date: 20160315
  Receipt Date: 20160315
  Transmission Date: 20160526
  Serious: Yes (Hospitalization, Other)
  Sender: FDA-Public Use
  Company Number: FI-ROCHE-1724844

PATIENT
  Age: 49 Year
  Sex: Female

DRUGS (9)
  1. PANADOL (FINLAND) [Concomitant]
     Indication: PAIN
     Dosage: AS NEEDED
     Route: 065
  2. IBUMAX [Concomitant]
     Indication: PAIN
     Dosage: AS NEEDED
     Route: 065
  3. HERCEPTIN [Suspect]
     Active Substance: TRASTUZUMAB
     Route: 058
     Dates: start: 20160217, end: 20160217
  4. XGEVA [Concomitant]
     Active Substance: DENOSUMAB
     Indication: METASTASES TO BONE
     Route: 058
     Dates: start: 20160108
  5. PERJETA [Suspect]
     Active Substance: PERTUZUMAB
     Indication: BREAST CANCER RECURRENT
     Route: 065
     Dates: start: 20160108, end: 20160108
  6. VINORELBINE [Concomitant]
     Active Substance: VINORELBINE\VINORELBINE TARTRATE
     Indication: BREAST CANCER RECURRENT
     Route: 042
     Dates: start: 20160217
  7. HERCEPTIN [Suspect]
     Active Substance: TRASTUZUMAB
     Indication: BREAST CANCER RECURRENT
     Route: 058
     Dates: start: 20160108, end: 20160108
  8. DOCETAXEL. [Concomitant]
     Active Substance: DOCETAXEL
     Indication: BREAST CANCER RECURRENT
     Route: 065
     Dates: start: 20160108, end: 20160108
  9. BUPRENORPHINE. [Concomitant]
     Active Substance: BUPRENORPHINE
     Indication: PAIN
     Dosage: 5 MCG PER HOUS WITH 7 DAYS INTERVALS
     Route: 065
     Dates: start: 2016

REACTIONS (8)
  - Decreased appetite [Unknown]
  - Pneumonia [Not Recovered/Not Resolved]
  - Pain [Recovering/Resolving]
  - Hypotension [Unknown]
  - Haemoglobin decreased [Recovered/Resolved]
  - Neutropenic infection [Recovered/Resolved]
  - Diarrhoea [Recovering/Resolving]
  - Oxygen saturation abnormal [Not Recovered/Not Resolved]

NARRATIVE: CASE EVENT DATE: 20160118
